FAERS Safety Report 22018092 (Version 6)
Quarter: 2023Q2

REPORT INFORMATION
  Report Type: Report from Study
  Country: US (occurrence: None)
  Receive Date: 20230221
  Receipt Date: 20230530
  Transmission Date: 20230722
  Serious: Yes (Death, Hospitalization)
  Sender: FDA-Public Use
  Company Number: US-Eisai Medical Research-EC-2023-134365

PATIENT
  Age: 86 Year
  Sex: Female
  Weight: 51.2 kg

DRUGS (2)
  1. LECANEMAB [Suspect]
     Active Substance: LECANEMAB
     Indication: Dementia Alzheimer^s type
     Route: 042
     Dates: start: 20200211, end: 20210727
  2. LECANEMAB [Suspect]
     Active Substance: LECANEMAB
     Dosage: OPEN LABEL
     Route: 042
     Dates: start: 20210901, end: 20230104

REACTIONS (3)
  - Acute myocardial infarction [Fatal]
  - Cardiac failure [Not Recovered/Not Resolved]
  - Atrial fibrillation [Not Recovered/Not Resolved]

NARRATIVE: CASE EVENT DATE: 20230109
